FAERS Safety Report 7815393-2 (Version None)
Quarter: 2011Q4

REPORT INFORMATION
  Report Type: 
  Country: None (occurrence: None)
  Receive Date: 20111014
  Receipt Date: 20111013
  Transmission Date: 20120403
  Serious: Yes (Hospitalization)
  Sender: FDA-Public Use
  Company Number: DE-ABBOTT-11P-062-0840956-00

PATIENT
  Sex: Male

DRUGS (1)
  1. HUMIRA [Suspect]
     Indication: CROHN'S DISEASE
     Route: 058
     Dates: start: 20081208, end: 20110401

REACTIONS (4)
  - RENAL TRANSPLANT [None]
  - ORGAN TRANSPLANT [None]
  - LIVER TRANSPLANT [None]
  - INTESTINAL TRANSPLANT [None]
